FAERS Safety Report 13251331 (Version 1)
Quarter: 2017Q1

REPORT INFORMATION
  Report Type: Spontaneous
  Country: TR (occurrence: TR)
  Receive Date: 20170220
  Receipt Date: 20170220
  Transmission Date: 20170428
  Serious: Yes (Disabling)
  Sender: FDA-Public Use
  Company Number: TR-DIAGNOSTIC GREEN GMBH-1063320

PATIENT
  Age: 60 Year
  Sex: Female

DRUGS (2)
  1. BRILLIANT BLUE [Concomitant]
     Active Substance: BRILLIANT BLUE
     Route: 031
  2. INDOCYANINE GREEN FOR INJECTION USP, 25 MG [Suspect]
     Active Substance: INDOCYANINE GREEN
     Indication: INTERNAL LIMITING MEMBRANE PEELING
     Route: 031

REACTIONS (1)
  - Retinal phototoxicity [Not Recovered/Not Resolved]
